FAERS Safety Report 9200692 (Version 2)
Quarter: 2013Q2

REPORT INFORMATION
  Report Type: Spontaneous
  Country: US (occurrence: US)
  Receive Date: 20130331
  Receipt Date: 20130425
  Transmission Date: 20140414
  Serious: No
  Sender: FDA-Public Use
  Company Number: US-009507513-1303USA013741

PATIENT
  Sex: 0

DRUGS (1)
  1. SAPHRIS [Suspect]
     Route: 048

REACTIONS (1)
  - Oral disorder [Unknown]
